FAERS Safety Report 4381860-X (Version None)
Quarter: 2004Q2

REPORT INFORMATION
  Report Type: 
  Country: None (occurrence: None)
  Receive Date: 20040615
  Receipt Date: 20040604
  Transmission Date: 20050107
  Serious: Yes (Life-Threatening, Hospitalization, Other)
  Sender: FDA-Public Use
  Company Number: 2004025332

PATIENT
  Age: 70 Year
  Sex: Male
  Weight: 78 kg

DRUGS (3)
  1. LIPITOR [Suspect]
     Indication: HYPERCHOLESTEROLAEMIA
     Dosage: UNK (10 MG, 1 IN 1 D), ORAL
     Route: 048
     Dates: start: 20020101, end: 20040405
  2. MODILOC (FELODIPINE, METOPROLOL SUCCINATE) [Concomitant]
  3. ACETYLSALICYLIC ACID SRT [Concomitant]

REACTIONS (6)
  - AORTIC ANEURYSM [None]
  - BLOOD PRESSURE INCREASED [None]
  - HYPERCHOLESTEROLAEMIA [None]
  - PEDAL PULSE ABNORMAL [None]
  - RENAL FAILURE [None]
  - RHABDOMYOLYSIS [None]
